FAERS Safety Report 21762921 (Version 1)
Quarter: 2022Q4

REPORT INFORMATION
  Report Type: Report from Study
  Country: US (occurrence: US)
  Receive Date: 20221221
  Receipt Date: 20221221
  Transmission Date: 20230113
  Serious: No
  Sender: FDA-Public Use
  Company Number: US-ABBVIE-4196065

PATIENT
  Sex: Male

DRUGS (12)
  1. SKYRIZI [Suspect]
     Active Substance: RISANKIZUMAB-RZAA
     Indication: Psoriasis
     Route: 058
  2. TRAZODONE HYDROCHLORIDE [Concomitant]
     Active Substance: TRAZODONE HYDROCHLORIDE
     Indication: Product used for unknown indication
  3. RISPERIDONE TAB 2 MG [Concomitant]
     Indication: Product used for unknown indication
  4. OMEPRAZOLE CPD 20 MG [Concomitant]
     Indication: Product used for unknown indication
  5. ATORVASTATIN TAB 80 MG [Concomitant]
     Indication: Product used for unknown indication
  6. METFORMIN HCL TAB 1000 MG [Concomitant]
     Indication: Product used for unknown indication
  7. BENZTROPINE TAB 1 MG [Concomitant]
     Indication: Product used for unknown indication
  8. SERTRALINE H TAB 100 MG [Concomitant]
     Indication: Product used for unknown indication
  9. ASPIRIN TAB 325 MG [Concomitant]
     Indication: Product used for unknown indication
  10. ATORVASTATIN TAB 80 MG [Concomitant]
     Indication: Product used for unknown indication
  11. ,LISINOPRIL TAB 40 MG [Concomitant]
     Indication: Product used for unknown indication
  12. SERTRALINE H TAB 100MG [Concomitant]
     Indication: Product used for unknown indication

REACTIONS (3)
  - Schizophrenia [Unknown]
  - Injection site pain [Unknown]
  - Diabetes mellitus [Unknown]
